FAERS Safety Report 20844891 (Version 1)
Quarter: 2022Q2

REPORT INFORMATION
  Report Type: Spontaneous
  Country: US (occurrence: US)
  Receive Date: 20220518
  Receipt Date: 20220518
  Transmission Date: 20220721
  Serious: No
  Sender: FDA-Public Use
  Company Number: US-NOVARTISTESTPH-NVSC2022US114601

PATIENT
  Sex: Female

DRUGS (3)
  1. PIQRAY [Suspect]
     Active Substance: ALPELISIB
     Indication: Product used for unknown indication
     Dosage: 300 MG
     Route: 048
     Dates: start: 20220516, end: 20220516
  2. PIQRAY [Suspect]
     Active Substance: ALPELISIB
     Dosage: 250 MG (DOSE REDUCED)
     Route: 048
  3. PIQRAY [Suspect]
     Active Substance: ALPELISIB
     Dosage: 300 MG, QD (DOSE REDUCED TO 250 MG)
     Route: 065
     Dates: start: 20220516, end: 20220516

REACTIONS (1)
  - Hyperglycaemia [Unknown]
